FAERS Safety Report 4666740-4 (Version None)
Quarter: 2005Q2

REPORT INFORMATION
  Report Type: 
  Country: None (occurrence: None)
  Receive Date: 20050518
  Receipt Date: 20041124
  Transmission Date: 20051028
  Serious: Yes (Hospitalization, Other)
  Sender: FDA-Public Use
  Company Number: 2004097485

PATIENT
  Age: 35 Year
  Sex: Female
  Weight: 95.2554 kg

DRUGS (6)
  1. DEPO-PROVERA [Suspect]
     Indication: CONTRACEPTION
     Dosage: (ONE INJECTION), INTRAMUSCULAR
     Route: 030
     Dates: start: 20040701, end: 20040701
  2. NEURONTIN [Concomitant]
  3. SEROQUEL [Concomitant]
  4. PERCOCET [Concomitant]
  5. OXYCONTIN [Concomitant]
  6. WELLBUTRIN [Concomitant]

REACTIONS (1)
  - PULMONARY THROMBOSIS [None]
